FAERS Safety Report 5572162-4 (Version None)
Quarter: 2007Q4

REPORT INFORMATION
  Report Type: 
  Country: None (occurrence: None)
  Receive Date: 20071221
  Receipt Date: 20071211
  Transmission Date: 20080405
  Serious: Yes (Hospitalization, Other)
  Sender: FDA-Public Use
  Company Number: US-PFIZER INC-2007097307

PATIENT
  Sex: Female

DRUGS (4)
  1. GLUCOTROL XL [Suspect]
  2. LINEZOLID [Suspect]
     Indication: URINARY TRACT INFECTION
  3. CELEXA [Concomitant]
  4. LOPRESSOR [Concomitant]

REACTIONS (3)
  - CARDIAC FAILURE CONGESTIVE [None]
  - DRUG INEFFECTIVE [None]
  - URINARY TRACT INFECTION [None]
